FAERS Safety Report 5827751-6 (Version None)
Quarter: 2008Q3

REPORT INFORMATION
  Report Type: 
  Country: None (occurrence: None)
  Receive Date: 20080728
  Receipt Date: 20080717
  Transmission Date: 20090109
  Serious: Yes (Hospitalization)
  Sender: FDA-Public Use
  Company Number: 100#03#2008-03702

PATIENT
  Age: 28 Year
  Sex: Female

DRUGS (2)
  1. DESMOPRESSIN ACETATE [Suspect]
     Indication: ARTHROSCOPY
     Dosage: 0.3 ?G/KG, INTRAVENOUS; 75 MG INTRAVENOUS (NOT OTHERWISE SPECIFIED)
     Route: 042
  2. TRANEXAMIC ACID (TRANEXAMIC ACID) [Suspect]
     Indication: DRUG USE FOR UNKNOWN INDICATION
     Dosage: 1 G FOUR TIMES DAILY,  ORAL
     Route: 048

REACTIONS (2)
  - ACUTE MYOCARDIAL INFARCTION [None]
  - CORONARY ARTERY DISEASE [None]
